FAERS Safety Report 25555569 (Version 3)
Quarter: 2025Q3

REPORT INFORMATION
  Report Type: Spontaneous
  Country: US (occurrence: US)
  Receive Date: 20250715
  Receipt Date: 20250718
  Transmission Date: 20251020
  Serious: Yes (Hospitalization, Other)
  Sender: PFIZER
  Company Number: US-PFIZER INC-202500141585

PATIENT
  Age: 70 Year
  Sex: Female

DRUGS (5)
  1. IBRANCE [Suspect]
     Active Substance: PALBOCICLIB
     Dates: start: 20250529, end: 20250625
  2. LETROZOLE [Concomitant]
     Active Substance: LETROZOLE
  3. LINZESS [Concomitant]
     Active Substance: LINACLOTIDE
  4. PRAVASTATIN [Concomitant]
     Active Substance: PRAVASTATIN
  5. PROPRANOLOL HYDROCHLORIDE [Concomitant]
     Active Substance: PROPRANOLOL HYDROCHLORIDE

REACTIONS (1)
  - Malignant neoplasm progression [Recovered/Resolved]
